FAERS Safety Report 23015774 (Version 1)
Quarter: 2023Q4

REPORT INFORMATION
  Report Type: Report from Study
  Country: US (occurrence: US)
  Receive Date: 20231002
  Receipt Date: 20231002
  Transmission Date: 20240110
  Serious: Yes (Other)
  Sender: FDA-Public Use
  Company Number: US-BEH-2023163419

PATIENT
  Age: 63 Year
  Sex: Male
  Weight: 92.52 kg

DRUGS (2)
  1. HIZENTRA [Suspect]
     Active Substance: HUMAN IMMUNOGLOBULIN G
     Indication: Selective IgG subclass deficiency
     Dosage: 8 GRAM, QW
     Route: 058
     Dates: start: 20230913, end: 20230913
  2. HIZENTRA [Suspect]
     Active Substance: HUMAN IMMUNOGLOBULIN G
     Indication: Humoral immune defect
     Dosage: UNK UNK, QW
     Route: 058
     Dates: start: 20230920, end: 20230920

REACTIONS (8)
  - Sinus congestion [Recovering/Resolving]
  - No adverse event [Unknown]
  - Incorrect product administration duration [Unknown]
  - Diarrhoea [Recovering/Resolving]
  - Sinus congestion [Recovering/Resolving]
  - Chest discomfort [Recovering/Resolving]
  - Throat tightness [Recovering/Resolving]
  - Productive cough [Recovering/Resolving]

NARRATIVE: CASE EVENT DATE: 20230913
